FAERS Safety Report 7569850-7 (Version None)
Quarter: 2011Q2

REPORT INFORMATION
  Report Type: 
  Country: None (occurrence: None)
  Receive Date: 20110622
  Receipt Date: 20110622
  Transmission Date: 20111010
  Serious: No
  Sender: FDA-Public Use
  Company Number: None

PATIENT
  Age: 86 Year
  Sex: Female
  Weight: 60 kg

DRUGS (1)
  1. ACTIVASE 1MG/ML GENETECH [Suspect]
     Indication: ISCHAEMIC STROKE
     Dosage: 5.4MG BOLUS ONCE IV; 48.6MG INFUSION ONCE IV
     Route: 040
     Dates: start: 20110323

REACTIONS (6)
  - DYSPNOEA [None]
  - LARYNGEAL OEDEMA [None]
  - HEMIPARESIS [None]
  - APHASIA [None]
  - OBSTRUCTIVE AIRWAYS DISORDER [None]
  - CARDIAC FAILURE CONGESTIVE [None]
